FAERS Safety Report 6310381-X (Version None)
Quarter: 2009Q3

REPORT INFORMATION
  Report Type: 
  Country: None (occurrence: None)
  Receive Date: 20090814
  Receipt Date: 20090731
  Transmission Date: 20100115
  Serious: Yes (Hospitalization)
  Sender: FDA-Public Use
  Company Number: JP-MYLANLABS-2009S1013736

PATIENT
  Age: 79 Year
  Sex: Male

DRUGS (1)
  1. TICLOPIDINE HCL [Suspect]
     Indication: THROMBOSIS PROPHYLAXIS

REACTIONS (4)
  - CHEST PAIN [None]
  - DRUG RESISTANCE [None]
  - PLATELET AGGREGATION DECREASED [None]
  - STENT OCCLUSION [None]
